FAERS Safety Report 22006934 (Version 1)
Quarter: 2023Q1

REPORT INFORMATION
  Report Type: Spontaneous
  Country: US (occurrence: US)
  Receive Date: 20230217
  Receipt Date: 20230217
  Transmission Date: 20230418
  Serious: No
  Sender: FDA-Public Use
  Company Number: US-MYLANLABS-2023M1016487

PATIENT
  Sex: Female
  Weight: 77.11 kg

DRUGS (1)
  1. CELEBREX [Suspect]
     Active Substance: CELECOXIB
     Indication: Toothache
     Dosage: 100 MILLIGRAM, PRN (NEEDED FOR TOOTH PAIN)
     Route: 048
     Dates: start: 20221221, end: 20221226

REACTIONS (1)
  - Drug eruption [Unknown]
